FAERS Safety Report 6138599-X (Version None)
Quarter: 2009Q1

REPORT INFORMATION
  Report Type: 
  Country: None (occurrence: None)
  Receive Date: 20090327
  Receipt Date: 20090319
  Transmission Date: 20090719
  Serious: Yes (Hospitalization)
  Sender: FDA-Public Use
  Company Number: 2009SP006114

PATIENT
  Age: 44 Year
  Sex: Male
  Weight: 92 kg

DRUGS (1)
  1. PEG-INTRON [Suspect]
     Indication: MALIGNANT MELANOMA

REACTIONS (4)
  - DEHYDRATION [None]
  - HYPERVENTILATION [None]
  - TACHYCARDIA [None]
  - THROMBOCYTOPENIA [None]
